FAERS Safety Report 7767664-6 (Version None)
Quarter: 2011Q3

REPORT INFORMATION
  Report Type: 
  Country: None (occurrence: None)
  Receive Date: 20110922
  Receipt Date: 20110920
  Transmission Date: 20111222
  Serious: Yes (Hospitalization)
  Sender: FDA-Public Use
  Company Number: ES-SANOFI-AVENTIS-2011SA061335

PATIENT
  Age: 82 Year
  Sex: Male

DRUGS (2)
  1. ENOXAPARIN SODIUM [Suspect]
     Route: 058
     Dates: start: 20110221, end: 20110221
  2. FUROSEMIDE [Concomitant]

REACTIONS (2)
  - PROTHROMBIN TIME RATIO INCREASED [None]
  - INTERNATIONAL NORMALISED RATIO INCREASED [None]
